FAERS Safety Report 8134449-0 (Version None)
Quarter: 2012Q1

REPORT INFORMATION
  Report Type: 
  Country: None (occurrence: None)
  Receive Date: 20120214
  Receipt Date: 20120214
  Transmission Date: 20120608
  Serious: Yes (Hospitalization)
  Sender: FDA-Public Use
  Company Number: None

PATIENT
  Age: 57 Year
  Sex: Female
  Weight: 120 kg

DRUGS (16)
  1. FUROSEMIDE [Concomitant]
     Route: 048
  2. INSULIN ASPART [Concomitant]
  3. FLUTICASONE-SALMETEROL 250/50 [Concomitant]
  4. FAMOTIDINE [Concomitant]
     Route: 048
  5. PREGABALIN [Concomitant]
     Route: 048
  6. PRAVASTATIN [Concomitant]
     Route: 048
  7. CITALOPRAM HYDROBROMIDE [Concomitant]
     Route: 048
  8. FLUTICASONE NASAL [Concomitant]
     Route: 045
  9. ALBUTEROL INHALER [Concomitant]
  10. LISINOPRIL [Concomitant]
     Route: 048
  11. WARFARIN SODIUM [Suspect]
     Indication: DEEP VEIN THROMBOSIS
     Dosage: 10 MG
     Route: 048
  12. WARFARIN SODIUM [Suspect]
     Indication: PULMONARY EMBOLISM
     Dosage: 10 MG
     Route: 048
  13. WARFARIN SODIUM [Suspect]
     Indication: ANTICOAGULANT THERAPY
     Dosage: 10 MG
     Route: 048
  14. INSULIN GLARGINE [Concomitant]
     Route: 058
  15. DIPHENHYDRAMINE HCL [Concomitant]
     Route: 048
  16. HYDROCODONE BITARTRATE AND ACETAMINOPHEN [Concomitant]

REACTIONS (3)
  - PNEUMONIA STAPHYLOCOCCAL [None]
  - INTERNATIONAL NORMALISED RATIO INCREASED [None]
  - SUBDURAL HAEMATOMA [None]
